FAERS Safety Report 6884094-X (Version None)
Quarter: 2010Q3

REPORT INFORMATION
  Report Type: 
  Country: None (occurrence: None)
  Receive Date: 20100727
  Receipt Date: 20100727
  Transmission Date: 20110219
  Serious: Yes (Other)
  Sender: FDA-Public Use
  Company Number: 7007692

PATIENT
  Age: 55 Year
  Sex: Male

DRUGS (5)
  1. REBIF [Suspect]
     Indication: MULTIPLE SCLEROSIS
     Dosage: 44 MCG, 3 IN 1 WK, SUBCUTANEOUS
     Route: 058
     Dates: start: 20021125
  2. ZONEGRAN [Concomitant]
  3. KEPPRA [Concomitant]
  4. OMEPRAZOLE [Concomitant]
  5. CLONAZEPAM [Concomitant]

REACTIONS (4)
  - HERNIA [None]
  - INJECTION SITE ERYTHEMA [None]
  - SCAR [None]
  - WEIGHT DECREASED [None]
